FAERS Safety Report 8454049-2 (Version None)
Quarter: 2012Q2

REPORT INFORMATION
  Report Type: 
  Country: None (occurrence: None)
  Receive Date: 20120323
  Receipt Date: 20110818
  Transmission Date: 20120825
  Serious: Yes (Other)
  Sender: FDA-Public Use
  Company Number: 163-21880-11082456

PATIENT
  Age: 78 Year
  Sex: Female

DRUGS (3)
  1. LENALIDOMIDE [Suspect]
     Indication: MULTIPLE MYELOMA
     Dosage: 5 MG, PO, 10 MG, PO, 5 MG, DAILY X 21 DAYS, PO
     Dates: start: 20110701
  2. LENALIDOMIDE [Suspect]
     Indication: MULTIPLE MYELOMA
     Dosage: 5 MG, PO, 10 MG, PO, 5 MG, DAILY X 21 DAYS, PO
     Dates: start: 20110401
  3. LENALIDOMIDE [Suspect]
     Indication: MULTIPLE MYELOMA
     Dosage: 5 MG, PO, 10 MG, PO, 5 MG, DAILY X 21 DAYS, PO
     Dates: start: 20110501

REACTIONS (1)
  - HAEMATOCRIT DECREASED [None]
